FAERS Safety Report 9857603 (Version 1)
Quarter: 2014Q1

REPORT INFORMATION
  Report Type: Spontaneous
  Country: TW (occurrence: TW)
  Receive Date: 20140131
  Receipt Date: 20140131
  Transmission Date: 20141002
  Serious: Yes (Death)
  Sender: FDA-Public Use
  Company Number: TW-ROCHE-1338809

PATIENT
  Age: 80 Year
  Sex: Male

DRUGS (5)
  1. BEVACIZUMAB [Suspect]
     Indication: COLON CANCER METASTATIC
     Route: 065
     Dates: start: 20120605, end: 20120607
  2. FOLINIC ACID [Suspect]
     Indication: COLON CANCER METASTATIC
     Route: 065
     Dates: start: 20120605, end: 20120607
  3. 5-FU [Suspect]
     Indication: COLON CANCER METASTATIC
     Route: 065
     Dates: start: 20120605, end: 20120607
  4. IRINOTECAN [Suspect]
     Indication: COLON CANCER METASTATIC
     Route: 065
     Dates: start: 20120605, end: 20120607
  5. IRINOTECAN [Suspect]
     Route: 065

REACTIONS (1)
  - Tumour lysis syndrome [Fatal]
